FAERS Safety Report 5012868-9 (Version None)
Quarter: 2006Q2

REPORT INFORMATION
  Report Type: 
  Country: None (occurrence: None)
  Receive Date: 20060525
  Receipt Date: 20060525
  Transmission Date: 20061013
  Serious: Yes (Disabling)
  Sender: FDA-Public Use
  Company Number: None

PATIENT
  Sex: Female

DRUGS (7)
  1. ALBUMIN [Suspect]
     Indication: GUILLAIN-BARRE SYNDROME
     Dosage: SEE IMAGE
     Dates: start: 20050319
  2. ALBUMIN [Suspect]
     Indication: GUILLAIN-BARRE SYNDROME
     Dosage: SEE IMAGE
     Dates: start: 20050321
  3. ALBUMIN [Suspect]
     Indication: GUILLAIN-BARRE SYNDROME
     Dosage: SEE IMAGE
     Dates: start: 20050323
  4. ALBUMIN [Suspect]
     Indication: GUILLAIN-BARRE SYNDROME
     Dosage: SEE IMAGE
     Dates: start: 20050326
  5. ALBUMIN [Suspect]
  6. ALBUMIN [Suspect]
  7. ALBUMIN [Suspect]

REACTIONS (2)
  - HEPATITIS C [None]
  - THERAPEUTIC PRODUCT CONTAMINATION [None]
